FAERS Safety Report 12396669 (Version 1)
Quarter: 2016Q2

REPORT INFORMATION
  Report Type: Spontaneous
  Country: US (occurrence: None)
  Receive Date: 20160523
  Receipt Date: 20160523
  Transmission Date: 20160815
  Serious: Yes (Other)
  Sender: FDA-Public Use
  Company Number: None

PATIENT
  Age: 53 Year
  Sex: Female
  Weight: 71.67 kg

DRUGS (5)
  1. CEPHALEXIN 500MG CAPSULES, 500 MG [Suspect]
     Active Substance: CEPHALEXIN
     Indication: SURGERY
     Route: 048
     Dates: start: 20160510, end: 20160518
  2. METHYLPREDNISONE [Concomitant]
     Active Substance: METHYLPREDNISOLONE
  3. BENADRYL [Concomitant]
     Active Substance: DIPHENHYDRAMINE HYDROCHLORIDE
  4. HYDROCORTISONE CREAM [Concomitant]
     Active Substance: HYDROCORTISONE
  5. CEPHALEXIN 500MG CAPSULES, 500 MG [Suspect]
     Active Substance: CEPHALEXIN
     Indication: INFECTION PROPHYLAXIS
     Route: 048
     Dates: start: 20160510, end: 20160518

REACTIONS (9)
  - Malaise [None]
  - Pyrexia [None]
  - Peripheral swelling [None]
  - Pruritus [None]
  - Angioedema [None]
  - Pain in extremity [None]
  - Burning sensation [None]
  - Paraesthesia [None]
  - Erythema [None]

NARRATIVE: CASE EVENT DATE: 20160517
